FAERS Safety Report 6303210-1 (Version None)
Quarter: 2009Q3

REPORT INFORMATION
  Report Type: 
  Country: None (occurrence: None)
  Receive Date: 20090810
  Receipt Date: 20090113
  Transmission Date: 20100115
  Serious: No
  Sender: FDA-Public Use
  Company Number: A0763437A

PATIENT
  Sex: Male

DRUGS (5)
  1. PAXIL [Suspect]
     Indication: ANXIETY DISORDER
     Dosage: 20MG PER DAY
     Route: 048
     Dates: start: 20081215, end: 20090113
  2. ALLEGRA [Concomitant]
  3. TRAZODONE HCL [Concomitant]
  4. CLARITIN [Concomitant]
  5. FLONASE [Concomitant]

REACTIONS (2)
  - PRODUCT TAMPERING [None]
  - SEDATION [None]
